FAERS Safety Report 23812761 (Version 1)
Quarter: 2024Q2

REPORT INFORMATION
  Report Type: Spontaneous
  Country: US (occurrence: US)
  Receive Date: 20240503
  Receipt Date: 20240503
  Transmission Date: 20240715
  Serious: No
  Sender: FDA-Public Use
  Company Number: US-VIIV HEALTHCARE LIMITED-US2024053316

PATIENT
  Sex: Male

DRUGS (4)
  1. CABOTEGRAVIR [Suspect]
     Active Substance: CABOTEGRAVIR
     Indication: Product used for unknown indication
     Dosage: UNK
  2. CABOTEGRAVIR [Suspect]
     Active Substance: CABOTEGRAVIR
  3. CABOTEGRAVIR [Suspect]
     Active Substance: CABOTEGRAVIR
  4. TYLENOL [Suspect]
     Active Substance: ACETAMINOPHEN
     Indication: Intervertebral disc protrusion
     Dosage: UNK

REACTIONS (7)
  - Headache [Unknown]
  - Intervertebral disc protrusion [Unknown]
  - Injection site pain [Unknown]
  - Pyrexia [Not Recovered/Not Resolved]
  - Chills [Not Recovered/Not Resolved]
  - Wrong technique in product usage process [Unknown]
  - Incorrect route of product administration [Unknown]
